FAERS Safety Report 6038834-2 (Version None)
Quarter: 2009Q1

REPORT INFORMATION
  Report Type: 
  Country: None (occurrence: None)
  Receive Date: 20090115
  Receipt Date: 20090108
  Transmission Date: 20090719
  Serious: Yes (Hospitalization)
  Sender: FDA-Public Use
  Company Number: BR-JNJFOC-20090101266

PATIENT
  Age: 52 Year
  Sex: Female
  Weight: 71 kg

DRUGS (4)
  1. TYLENOL SINUS [Suspect]
     Indication: SINUSITIS
  2. CLINDAL AZ [Interacting]
     Indication: SINUSITIS
  3. PROPRANOLOL [Concomitant]
     Indication: HYPERTENSION
  4. PURAN T4 [Concomitant]
     Indication: THYROID DISORDER

REACTIONS (7)
  - CHILLS [None]
  - DRUG INEFFECTIVE [None]
  - DRUG INTERACTION [None]
  - GLOBAL AMNESIA [None]
  - PRODUCT QUALITY ISSUE [None]
  - PYREXIA [None]
  - VOMITING [None]
